FAERS Safety Report 24010448 (Version 2)
Quarter: 2024Q3

REPORT INFORMATION
  Report Type: Spontaneous
  Country: CN (occurrence: CN)
  Receive Date: 20240625
  Receipt Date: 20240704
  Transmission Date: 20241017
  Serious: Yes (Other)
  Sender: NOVARTIS
  Company Number: CN-002147023-NVSC2024CN130132

PATIENT
  Age: 70 Year
  Sex: Female
  Weight: 51 kg

DRUGS (2)
  1. LEQVIO [Suspect]
     Active Substance: INCLISIRAN SODIUM
     Indication: Primary hypercholesterolaemia
     Dosage: UNK, (1 INJECTION ONCE)
     Route: 058
     Dates: start: 20240323, end: 20240619
  2. ROSUVASTATIN [Concomitant]
     Active Substance: ROSUVASTATIN
     Indication: Product used for unknown indication
     Dosage: 1 DOSAGE FORM, QD
     Route: 048

REACTIONS (19)
  - Liver injury [Unknown]
  - Alanine aminotransferase increased [Unknown]
  - Aspartate aminotransferase increased [Unknown]
  - Gamma-glutamyltransferase increased [Unknown]
  - Blood bilirubin increased [Unknown]
  - Bilirubin conjugated [Unknown]
  - Blood alkaline phosphatase increased [Unknown]
  - Bile acids increased [Unknown]
  - Blood urea increased [Unknown]
  - Blood creatinine increased [Unknown]
  - Blood uric acid increased [Unknown]
  - Blood glucose increased [Unknown]
  - Blood cholesterol decreased [Unknown]
  - Blood lactate dehydrogenase increased [Unknown]
  - Alpha hydroxybutyrate dehydrogenase increased [Unknown]
  - Serum ferritin increased [Unknown]
  - Iron binding capacity unsaturated decreased [Unknown]
  - Lipase increased [Unknown]
  - Blood bilirubin unconjugated increased [Unknown]

NARRATIVE: CASE EVENT DATE: 20240618
